FAERS Safety Report 8589682-0 (Version None)
Quarter: 2012Q3

REPORT INFORMATION
  Report Type: 
  Country: None (occurrence: None)
  Receive Date: 20120813
  Receipt Date: 20120608
  Transmission Date: 20120928
  Serious: Yes (Other)
  Sender: FDA-Public Use
  Company Number: JP-009507513-1208JPN005034

PATIENT

DRUGS (10)
  1. REBETOL [Suspect]
     Indication: HEPATITIS C
     Route: 048
     Dates: start: 20120410, end: 20120423
  2. PYRAZOLONE (PHENYLBUTAZONE) [Concomitant]
     Indication: HEADACHE
     Dosage: 1G/DAY AS NEEDED
     Route: 048
     Dates: start: 20120515
  3. REBETOL [Suspect]
     Route: 048
     Dates: start: 20120424, end: 20120430
  4. TELAVIC [Suspect]
     Indication: HEPATITIS C
     Route: 048
     Dates: start: 20120410, end: 20120605
  5. DICLOFENAC SODIUM [Concomitant]
     Indication: BACK PAIN
     Dosage: 50MG/DAY AS NEEDED
     Route: 054
     Dates: start: 20120411, end: 20120412
  6. LANSOPRAZOLE [Concomitant]
     Indication: GASTROOESOPHAGEAL REFLUX DISEASE
     Route: 048
  7. GASMOTIN [Concomitant]
     Indication: GASTRITIS
     Route: 048
  8. REBETOL [Suspect]
     Route: 048
     Dates: start: 20120515, end: 20120605
  9. PEG-INTRON [Suspect]
     Indication: HEPATITIS C
     Dosage: 1.5MCG/KG/WEEK
     Route: 058
     Dates: start: 20120410, end: 20120605
  10. REBETOL [Suspect]
     Route: 048
     Dates: start: 20120501, end: 20120514

REACTIONS (2)
  - DRUG ERUPTION [None]
  - ERYTHEMA MULTIFORME [None]
